FAERS Safety Report 14111078 (Version 3)
Quarter: 2017Q4

REPORT INFORMATION
  Report Type: Spontaneous
  Country: JP (occurrence: JP)
  Receive Date: 20171020
  Receipt Date: 20171206
  Transmission Date: 20180321
  Serious: Yes (Death, Other)
  Sender: FDA-Public Use
  Company Number: JP-AMGEN-JPNSP2017159657

PATIENT
  Age: 68 Year
  Sex: Male
  Weight: 70 kg

DRUGS (3)
  1. VECTIBIX [Suspect]
     Active Substance: PANITUMUMAB
     Indication: RECTAL CANCER
  2. IRINOTECAN HYDROCHLORIDE. [Suspect]
     Active Substance: IRINOTECAN HYDROCHLORIDE
     Indication: RECTAL CANCER
     Dosage: 280.5 MG, Q2WEEKS
     Route: 041
     Dates: start: 20170802, end: 20170802
  3. VECTIBIX [Suspect]
     Active Substance: PANITUMUMAB
     Indication: COLON CANCER
     Dosage: 456 MG, Q2WEEKS
     Route: 041
     Dates: start: 20170802, end: 20170802

REACTIONS (13)
  - Pancytopenia [Unknown]
  - Renal failure [Fatal]
  - Coagulopathy [Unknown]
  - Febrile neutropenia [Fatal]
  - Angiopathy [Unknown]
  - Gallbladder perforation [Unknown]
  - Gastrointestinal haemorrhage [Fatal]
  - Bone marrow failure [Fatal]
  - Vomiting [Unknown]
  - Diarrhoea [Fatal]
  - Tongue necrosis [Unknown]
  - Multiple organ dysfunction syndrome [Fatal]
  - Aspiration [Unknown]

NARRATIVE: CASE EVENT DATE: 20170806
